FAERS Safety Report 9911420 (Version 1)
Quarter: 2014Q1

REPORT INFORMATION
  Report Type: Spontaneous
  Country: DE (occurrence: DE)
  Receive Date: 20140219
  Receipt Date: 20140219
  Transmission Date: 20141002
  Serious: Yes (Life-Threatening, Hospitalization)
  Sender: FDA-Public Use
  Company Number: GXKR2014DE000933

PATIENT
  Sex: 0

DRUGS (4)
  1. CLOZAPINE [Suspect]
     Indication: SCHIZOAFFECTIVE DISORDER
     Dosage: 350 MG, UNK
     Route: 048
  2. ZUCLOPENTHIXOL [Concomitant]
     Indication: SCHIZOAFFECTIVE DISORDER
     Dosage: 40 MG, UNK
     Route: 048
  3. VALPROAT [Concomitant]
     Indication: SCHIZOAFFECTIVE DISORDER
     Dosage: 1200 MG, UNK
     Route: 048
  4. LITHIUM [Concomitant]
     Indication: SCHIZOAFFECTIVE DISORDER
     Route: 048

REACTIONS (3)
  - Pneumonia [Not Recovered/Not Resolved]
  - Respiratory failure [Not Recovered/Not Resolved]
  - Infectious pleural effusion [Not Recovered/Not Resolved]
